FAERS Safety Report 8963079 (Version 4)
Quarter: 2013Q1

REPORT INFORMATION
  Report Type: Spontaneous
  Country: US (occurrence: US)
  Receive Date: 20121214
  Receipt Date: 20130306
  Transmission Date: 20140127
  Serious: Yes (Other)
  Sender: FDA-Public Use
  Company Number: US-BAYER-2012-129802

PATIENT
  Age: 25 Year
  Sex: Female
  Weight: 94.33 kg

DRUGS (3)
  1. MIRENA [Suspect]
     Indication: CONTRACEPTION
     Dosage: 20 MCG/24HR, CONT
     Route: 015
     Dates: start: 20120621
  2. BYSTOLIC [Concomitant]
     Indication: HYPERTENSION
  3. MAXZIDE [Concomitant]
     Indication: HYPERTENSION

REACTIONS (6)
  - Device dislocation [None]
  - Subchorionic haemorrhage [None]
  - Haemorrhage in pregnancy [None]
  - Pregnancy with contraceptive device [None]
  - Drug ineffective [None]
  - Abortion spontaneous [None]
